FAERS Safety Report 6709135-1 (Version None)
Quarter: 2010Q2

REPORT INFORMATION
  Report Type: 
  Country: None (occurrence: None)
  Receive Date: 20100503
  Receipt Date: 20100503
  Transmission Date: 20101027
  Serious: Yes (Hospitalization)
  Sender: FDA-Public Use
  Company Number: None

PATIENT
  Age: 60 Year
  Sex: Male
  Weight: 132.7 kg

DRUGS (2)
  1. DILTIAZEM HCL [Suspect]
     Indication: HYPERTENSION
     Dosage: 240 MG EVERY DAY PO
     Route: 048
     Dates: start: 20040412, end: 20100425
  2. METOPROLOL SUCCINATE [Suspect]
     Indication: HYPERTENSION
     Dosage: 75 MG BID PO
     Route: 048
     Dates: start: 20060219, end: 20100425

REACTIONS (1)
  - BRADYCARDIA [None]
